FAERS Safety Report 20612430 (Version 2)
Quarter: 2022Q2

REPORT INFORMATION
  Report Type: Spontaneous
  Country: JP (occurrence: JP)
  Receive Date: 20220318
  Receipt Date: 20220525
  Transmission Date: 20220720
  Serious: Yes (Hospitalization, Other)
  Sender: FDA-Public Use
  Company Number: JP-TAKEDA-2022TJP030279

PATIENT
  Age: 46 Year
  Sex: Female
  Weight: 84.2 kg

DRUGS (12)
  1. ADCETRIS [Suspect]
     Active Substance: BRENTUXIMAB VEDOTIN
     Indication: Hodgkin^s disease
     Dosage: 50 MILLIGRAM, Q2WEEKS
     Route: 041
     Dates: start: 20220125
  2. ADCETRIS [Suspect]
     Active Substance: BRENTUXIMAB VEDOTIN
     Dosage: 25 MILLIGRAM
     Route: 041
  3. DACARBAZINE [Suspect]
     Active Substance: DACARBAZINE
     Indication: Hodgkin^s disease
     Dosage: 500 MILLIGRAM, Q2WEEKS
     Route: 041
     Dates: start: 20220125
  4. DOXORUBICIN HYDROCHLORIDE [Suspect]
     Active Substance: DOXORUBICIN HYDROCHLORIDE
     Indication: Hodgkin^s disease
     Dosage: 50 MILLIGRAM, Q2WEEKS
     Route: 041
     Dates: start: 20220125
  5. VINBLASTINE SULFATE [Suspect]
     Active Substance: VINBLASTINE SULFATE
     Indication: Hodgkin^s disease
     Dosage: 10 MILLIGRAM, Q2WEEKS
     Route: 041
     Dates: start: 20220125
  6. PALONOSETRON HYDROCHLORIDE [Concomitant]
     Active Substance: PALONOSETRON HYDROCHLORIDE
     Indication: Hodgkin^s disease
     Dosage: 0.75 MILLIGRAM, Q2WEEKS
     Route: 041
     Dates: start: 20220125
  7. DEXAMETHASONE SODIUM PHOSPHATE [Concomitant]
     Active Substance: DEXAMETHASONE SODIUM PHOSPHATE
     Indication: Hodgkin^s disease
     Dosage: 16.5 MILLIGRAM, Q2WEEKS
     Route: 041
     Dates: start: 20220125
  8. LANSOPRAZOLE [Concomitant]
     Active Substance: LANSOPRAZOLE
     Indication: Prophylaxis against gastrointestinal ulcer
     Dosage: 15 MILLIGRAM, QD
     Route: 048
     Dates: start: 20220112
  9. TRAMADOL [Concomitant]
     Active Substance: TRAMADOL
     Indication: Pain in extremity
     Dosage: 100 MILLIGRAM, QID
     Route: 048
     Dates: start: 20220116
  10. SULFAMETHOXAZOLE\TRIMETHOPRIM [Concomitant]
     Active Substance: SULFAMETHOXAZOLE\TRIMETHOPRIM
     Indication: Antifungal prophylaxis
     Dosage: 1 DOSAGE FORM, 3/WEEK
     Route: 048
     Dates: start: 20220128
  11. AMLODIPINE [Concomitant]
     Active Substance: AMLODIPINE BESYLATE
     Indication: Hypertension
     Dosage: 5 MILLIGRAM, QD
     Route: 048
     Dates: start: 20220303
  12. FERRIC CITRATE ANHYDROUS [Concomitant]
     Active Substance: FERRIC CITRATE ANHYDROUS
     Indication: Hyperphosphataemia
     Dosage: 500 MILLIGRAM, TID
     Route: 048
     Dates: start: 20220128

REACTIONS (2)
  - Deep vein thrombosis [Recovering/Resolving]
  - Hypoaesthesia [Recovering/Resolving]

NARRATIVE: CASE EVENT DATE: 20220217
